FAERS Safety Report 10080941 (Version 2)
Quarter: 2014Q2

REPORT INFORMATION
  Report Type: Spontaneous
  Country: US (occurrence: US)
  Receive Date: 20140416
  Receipt Date: 20140512
  Transmission Date: 20141212
  Serious: Yes (Hospitalization, Other)
  Sender: FDA-Public Use
  Company Number: US-MERCK-1404USA008094

PATIENT
  Age: 89 Year
  Sex: Male
  Weight: 78.8 kg

DRUGS (1)
  1. JANUVIA [Suspect]
     Dosage: UNK
     Dates: start: 201312, end: 201402

REACTIONS (1)
  - Pancreatitis acute [Recovered/Resolved]
